FAERS Safety Report 5372913-8 (Version None)
Quarter: 2007Q2

REPORT INFORMATION
  Report Type: 
  Country: None (occurrence: None)
  Receive Date: 20070626
  Receipt Date: 20070611
  Transmission Date: 20071010
  Serious: Yes (Death, Hospitalization)
  Sender: FDA-Public Use
  Company Number: 100#08#2007-02228

PATIENT
  Age: 58 Year
  Sex: Male

DRUGS (3)
  1. HEPARIN [Suspect]
     Indication: DRUG USE FOR UNKNOWN INDICATION
  2. WARFARIN SODIUM [Suspect]
     Indication: DRUG USE FOR UNKNOWN INDICATION
  3. DANAPAROID SODIUM (DANAPAROID SODIUM) (DANAPAROID SODIUM) [Concomitant]

REACTIONS (10)
  - ANTITHROMBIN III DEFICIENCY [None]
  - AXILLARY VEIN THROMBOSIS [None]
  - BRONCHIAL CARCINOMA [None]
  - CARDIAC TAMPONADE [None]
  - HEPARIN-INDUCED THROMBOCYTOPENIA [None]
  - INTERNATIONAL NORMALISED RATIO INCREASED [None]
  - PNEUMONIA [None]
  - PROTEIN C DEFICIENCY [None]
  - PROTEIN S DEFICIENCY [None]
  - SKIN NECROSIS [None]
